FAERS Safety Report 22065987 (Version 1)
Quarter: 2023Q1

REPORT INFORMATION
  Report Type: Spontaneous
  Country: US (occurrence: US)
  Receive Date: 20230306
  Receipt Date: 20230306
  Transmission Date: 20230417
  Serious: Yes (Other)
  Sender: FDA-Public Use
  Company Number: US-ELI_LILLY_AND_COMPANY-US202303000578

PATIENT
  Age: 18 Year
  Sex: Male

DRUGS (1)
  1. TALTZ [Suspect]
     Active Substance: IXEKIZUMAB
     Indication: Psoriasis
     Dosage: 80 MG, OTHER
     Route: 058
     Dates: start: 202210

REACTIONS (4)
  - Syncope [Unknown]
  - Pyrexia [Unknown]
  - Pain of skin [Unknown]
  - Dizziness [Unknown]

NARRATIVE: CASE EVENT DATE: 20230226
